FAERS Safety Report 8284943-7 (Version None)
Quarter: 2012Q2

REPORT INFORMATION
  Report Type: 
  Country: None (occurrence: None)
  Receive Date: 20120413
  Receipt Date: 20111230
  Transmission Date: 20120825
  Serious: No
  Sender: FDA-Public Use
  Company Number: US-ASTRAZENECA-2011SE29391

PATIENT
  Age: 48 Year
  Sex: Female

DRUGS (2)
  1. NEXIUM [Suspect]
     Route: 048
  2. ABILIFY [Concomitant]

REACTIONS (5)
  - DIABETES MELLITUS [None]
  - HEADACHE [None]
  - RESPIRATORY TRACT INFECTION VIRAL [None]
  - ABDOMINAL DISCOMFORT [None]
  - HYPERTENSION [None]
